FAERS Safety Report 20832275 (Version 1)
Quarter: 2022Q2

REPORT INFORMATION
  Report Type: 
  Country: None (occurrence: None)
  Receive Date: 20220516
  Receipt Date: 20220516
  Transmission Date: 20220721
  Serious: No
  Sender: FDA-Public Use
  Company Number: US-ROCHE-3091824

PATIENT

DRUGS (1)
  1. ATEZOLIZUMAB [Suspect]
     Active Substance: ATEZOLIZUMAB
     Dates: start: 20181212

REACTIONS (9)
  - Aspiration [None]
  - Acute respiratory distress syndrome [None]
  - Confusional state [None]
  - Hypotension [None]
  - Hypoxia [None]
  - Multiple organ dysfunction syndrome [None]
  - Portal vein thrombosis [None]
  - Cerebrovascular accident [None]
  - Vomiting [None]

NARRATIVE: CASE EVENT DATE: 20190105
